FAERS Safety Report 8979566 (Version 2)
Quarter: 2012Q4

REPORT INFORMATION
  Report Type: 
  Country: GR (occurrence: GR)
  Receive Date: 20121221
  Receipt Date: 20121228
  Transmission Date: 20130627
  Serious: Yes (Other)
  Sender: FDA-Public Use
  Company Number: GR-ELI_LILLY_AND_COMPANY-GR201212003102

PATIENT
  Age: 50 Year
  Sex: Female

DRUGS (5)
  1. CYMBALTA [Suspect]
     Indication: TRIGEMINAL NEURALGIA
     Dosage: 60 mg, qd
     Route: 048
     Dates: start: 201206
  2. MIOREL [Concomitant]
     Indication: MULTIPLE SCLEROSIS
     Dosage: 10 mg, qd
  3. CORTISON [Concomitant]
     Indication: MULTIPLE SCLEROSIS
     Dosage: UNK
     Route: 058
  4. NEXIUM [Concomitant]
     Indication: GASTROINTESTINAL DISORDER
     Dosage: UNK
  5. TOPAMAC [Concomitant]
     Indication: MULTIPLE SCLEROSIS
     Dosage: UNK

REACTIONS (2)
  - Lymphoedema [Not Recovered/Not Resolved]
  - Off label use [Unknown]
